FAERS Safety Report 25957069 (Version 3)
Quarter: 2025Q4

REPORT INFORMATION
  Report Type: Spontaneous
  Country: EU (occurrence: EU)
  Receive Date: 20251024
  Receipt Date: 20251105
  Transmission Date: 20260117
  Serious: Yes (Death, Other)
  Sender: MERCK SHARP & DOHME LLC
  Company Number: EU-009507513-2342687

PATIENT
  Age: 45 Year
  Sex: Female
  Weight: 53 kg

DRUGS (7)
  1. TEMOZOLOMIDE [Suspect]
     Active Substance: TEMOZOLOMIDE
     Indication: Secretory adenoma of pituitary
     Dosage: TIME INTERVAL: CYCLICAL: 220-200 MG/M^2/DAY ORALLY FOR 5 DAYS EVERY 28 DAYS (CYCLICAL)
     Route: 048
     Dates: start: 20200805, end: 20201110
  2. TEMOZOLOMIDE [Suspect]
     Active Substance: TEMOZOLOMIDE
     Indication: Secretory adenoma of pituitary
     Dosage: 40 MG/DAY
     Route: 048
     Dates: start: 20201218, end: 20210122
  3. TEMOZOLOMIDE [Suspect]
     Active Substance: TEMOZOLOMIDE
     Indication: Secretory adenoma of pituitary
     Dosage: LOW-DOSE METRONOMIC, 40 MG/DAY
     Route: 048
     Dates: start: 20220516, end: 20230906
  4. HYDROCORTISONE [Concomitant]
     Active Substance: HYDROCORTISONE
     Indication: Adrenal insufficiency
     Dosage: 20+5 MG; TOTAL DAILY DOSAGE: 30 MG
     Route: 048
     Dates: start: 20190101
  5. CHOLECALCIFEROL [Concomitant]
     Active Substance: CHOLECALCIFEROL
     Indication: Vitamin D deficiency
     Route: 048
     Dates: start: 20180101
  6. EZETIMIBE\ROSUVASTATIN ZINC [Concomitant]
     Active Substance: EZETIMIBE\ROSUVASTATIN ZINC
     Dosage: 20/10 MG /DAY
     Route: 048
  7. FLORINEF ACETATE [Concomitant]
     Active Substance: FLUDROCORTISONE ACETATE
     Dosage: TOTAL DAILY DOSAGE: 0,15 MG/DAY
     Route: 048
     Dates: start: 20200909

REACTIONS (9)
  - Death [Fatal]
  - Haematotoxicity [Unknown]
  - Product use in unapproved indication [Unknown]
  - Neutropenia [Recovered/Resolved]
  - Bone marrow failure [Unknown]
  - Hyperkalaemia [Not Recovered/Not Resolved]
  - Hyponatraemia [Not Recovered/Not Resolved]
  - Anaemia [Recovered/Resolved]
  - Thrombocytopenia [Recovered/Resolved]

NARRATIVE: CASE EVENT DATE: 20200101
